FAERS Safety Report 6544735-3 (Version None)
Quarter: 2010Q1

REPORT INFORMATION
  Report Type: 
  Country: None (occurrence: None)
  Receive Date: 20100121
  Receipt Date: 20100119
  Transmission Date: 20100710
  Serious: Yes (Hospitalization, Other)
  Sender: FDA-Public Use
  Company Number: NL-ROXANE LABORATORIES, INC.-2009-DE-07501GD

PATIENT
  Age: 76 Year
  Sex: Female

DRUGS (9)
  1. OMEPRAZOLE [Suspect]
     Indication: RHEUMATOID ARTHRITIS
     Dates: start: 19850101
  2. PREDNISONE [Suspect]
     Indication: RHEUMATOID ARTHRITIS
     Dosage: 10 MG
     Dates: start: 19960301
  3. PREDNISONE [Suspect]
     Dosage: 5 MG
     Dates: start: 19990101
  4. ALENDRONATE SODIUM [Suspect]
     Indication: BONE DENSITY DECREASED
     Dosage: INITIAL DOSE 10 MG/D FOLLOWED BY 70 MG ONCE WEEKLY
     Route: 048
     Dates: start: 19990801, end: 20080201
  5. ALENDRONATE SODIUM [Suspect]
     Indication: PROPHYLAXIS
  6. METHOTREXATE [Suspect]
     Indication: RHEUMATOID ARTHRITIS
     Dosage: 15 MG
     Dates: start: 19990101, end: 20070601
  7. DICLOFENAC SODIUM [Concomitant]
     Indication: RHEUMATOID ARTHRITIS
     Dates: start: 19850101
  8. GOLD [Concomitant]
     Indication: RHEUMATOID ARTHRITIS
     Dates: start: 19850101
  9. PENICILLAMINE [Concomitant]
     Indication: RHEUMATOID ARTHRITIS
     Dates: start: 19850101

REACTIONS (4)
  - BONE FORMATION DECREASED [None]
  - FEMUR FRACTURE [None]
  - RESORPTION BONE INCREASED [None]
  - STRESS FRACTURE [None]
